FAERS Safety Report 10642681 (Version 1)
Quarter: 2014Q4

REPORT INFORMATION
  Report Type: Spontaneous
  Country: US (occurrence: None)
  Receive Date: 20141208
  Receipt Date: 20141208
  Transmission Date: 20150529
  Serious: Yes (Life-Threatening)
  Sender: FDA-Public Use
  Company Number: None

PATIENT
  Age: 44 Year
  Sex: Female
  Weight: 74.84 kg

DRUGS (1)
  1. NEXPLANON [Suspect]
     Active Substance: ETONOGESTREL

REACTIONS (7)
  - Economic problem [None]
  - Suicidal ideation [None]
  - Mood swings [None]
  - Depression [None]
  - Haemorrhage [None]
  - Thinking abnormal [None]
  - Legal problem [None]

NARRATIVE: CASE EVENT DATE: 20140724
